FAERS Safety Report 4562807-X (Version None)
Quarter: 2005Q1

REPORT INFORMATION
  Report Type: 
  Country: None (occurrence: None)
  Receive Date: 20050127
  Receipt Date: 20050118
  Transmission Date: 20050727
  Serious: Yes (Other)
  Sender: FDA-Public Use
  Company Number: US-GLAXOSMITHKLINE-A0542275A

PATIENT
  Sex: Female

DRUGS (5)
  1. COMPAZINE [Suspect]
     Indication: DRUG USE FOR UNKNOWN INDICATION
  2. SYNTHROID [Concomitant]
  3. SECTRAL [Concomitant]
  4. SINEQUAN [Concomitant]
  5. CHLORPHENIRAMINE MALEATE [Concomitant]

REACTIONS (1)
  - FACIAL PALSY [None]
